FAERS Safety Report 8926718 (Version 6)
Quarter: 2013Q2

REPORT INFORMATION
  Report Type: Spontaneous
  Country: US (occurrence: US)
  Receive Date: 20121127
  Receipt Date: 20130419
  Transmission Date: 20140414
  Serious: Yes (Hospitalization, Other)
  Sender: FDA-Public Use
  Company Number: US-009507513-1206USA01261

PATIENT
  Sex: Female
  Weight: 71.2 kg

DRUGS (9)
  1. FOSAMAX [Suspect]
     Indication: OSTEOPOROSIS
     Dosage: 70 MG, QW
     Route: 048
     Dates: start: 2007, end: 200905
  2. FOSAMAX PLUS D [Suspect]
     Indication: OSTEOPOROSIS
     Dosage: 70 MG, QW
     Route: 048
     Dates: start: 2007, end: 200905
  3. ALENDRONATE SODIUM [Suspect]
     Indication: OSTEOPOROSIS
     Dosage: 70 MG, QW
     Route: 048
     Dates: start: 20090531, end: 201102
  4. CALCIUM (UNSPECIFIED) (+) VITAMIN D (UNSPECIFIED) [Concomitant]
     Dosage: 1200MG 800IU QD
     Dates: start: 1992, end: 2011
  5. CALCIUM (UNSPECIFIED) (+) VITAMIN D (UNSPECIFIED) [Concomitant]
     Dosage: 1800MG-1000 IU QD
     Dates: start: 2011
  6. HORMONES (UNSPECIFIED) [Concomitant]
     Dosage: UNK
     Dates: start: 1997
  7. NEURONTIN [Concomitant]
     Indication: NEUROPATHY PERIPHERAL
     Dosage: 300 MG, BID
     Route: 048
     Dates: start: 2003
  8. PROLIA [Concomitant]
     Indication: OSTEOPOROSIS
     Dosage: UNK
     Dates: start: 20110302
  9. HYZAAR [Concomitant]
     Indication: ESSENTIAL HYPERTENSION
     Dosage: 100 MG/25 MG QD
     Route: 048

REACTIONS (28)
  - Femur fracture [Recovering/Resolving]
  - Open reduction of fracture [Unknown]
  - Hip arthroplasty [Unknown]
  - Osteoarthritis [Unknown]
  - Intestinal resection [Unknown]
  - Hysterectomy [Unknown]
  - Breast prosthesis implantation [Unknown]
  - Patella fracture [Unknown]
  - Fracture delayed union [Unknown]
  - Radius fracture [Not Recovered/Not Resolved]
  - Irritable bowel syndrome [Unknown]
  - Impaired healing [Unknown]
  - Tooth extraction [Unknown]
  - Fall [Unknown]
  - Patella fracture [Unknown]
  - Weight increased [Unknown]
  - Arthritis [Unknown]
  - Stress urinary incontinence [Unknown]
  - Bladder prolapse [Unknown]
  - Rotator cuff syndrome [Unknown]
  - Rhinoplasty [Unknown]
  - Fall [Unknown]
  - Scoliosis [Unknown]
  - Spondylolisthesis [Unknown]
  - Vertebral foraminal stenosis [Unknown]
  - Intervertebral disc degeneration [Unknown]
  - Back pain [Not Recovered/Not Resolved]
  - Dyspepsia [Unknown]
